FAERS Safety Report 17334355 (Version 3)
Quarter: 2020Q1

REPORT INFORMATION
  Report Type: Report from Study
  Country: US (occurrence: US)
  Receive Date: 20200128
  Receipt Date: 20200305
  Transmission Date: 20200409
  Serious: Yes (Other)
  Sender: FDA-Public Use
  Company Number: US-GILEAD-2020-0448620

PATIENT
  Sex: Female

DRUGS (2)
  1. ORKAMBI [Concomitant]
     Active Substance: IVACAFTOR\LUMACAFTOR
  2. AZTREONAM LYSINE [Suspect]
     Active Substance: AZTREONAM LYSINE
     Indication: CYSTIC FIBROSIS
     Dosage: 75 MG, TID,  CONTINUOUSLY
     Route: 055

REACTIONS (4)
  - Cystic fibrosis [Not Recovered/Not Resolved]
  - Off label use [Unknown]
  - Maternal exposure during pregnancy [Not Recovered/Not Resolved]
  - Infection [Unknown]
